FAERS Safety Report 19276518 (Version 3)
Quarter: 2021Q3

REPORT INFORMATION
  Report Type: Other
  Country: PL (occurrence: PL)
  Receive Date: 20210520
  Receipt Date: 20210907
  Transmission Date: 20211014
  Serious: No
  Sender: FDA-Public Use
  Company Number: PL-ROCHE-2831359

PATIENT
  Age: 39 Year
  Sex: Female
  Weight: 69 kg

DRUGS (14)
  1. LETROX [Concomitant]
     Active Substance: LEVOTHYROXINE SODIUM
     Route: 048
  2. AMERTIL [Concomitant]
     Active Substance: CETIRIZINE HYDROCHLORIDE
     Indication: PREMEDICATION
     Dosage: ONCE BEFORE INFUSION
     Route: 048
     Dates: start: 20200928, end: 20200928
  3. PARACETAMOL [Concomitant]
     Active Substance: ACETAMINOPHEN
     Dosage: ONCE BEFORE INFUSION
     Route: 048
     Dates: start: 20201022, end: 20201022
  4. LETROX [Concomitant]
     Active Substance: LEVOTHYROXINE SODIUM
     Route: 048
  5. AMERTIL [Concomitant]
     Active Substance: CETIRIZINE HYDROCHLORIDE
     Dosage: ONCE BEFORE INFUSION
     Route: 048
     Dates: start: 20201022, end: 20201022
  6. PARACETAMOL [Concomitant]
     Active Substance: ACETAMINOPHEN
     Indication: PREMEDICATION
     Dosage: ONCE BEFORE INFUSION
     Route: 048
     Dates: start: 20200928, end: 20200928
  7. SOLU?MEDROL [Concomitant]
     Active Substance: METHYLPREDNISOLONE SODIUM SUCCINATE
     Indication: PREMEDICATION
     Dosage: ONCE BEFORE INFUSION
     Route: 042
     Dates: start: 20200928, end: 20200928
  8. SOLU?MEDROL [Concomitant]
     Active Substance: METHYLPREDNISOLONE SODIUM SUCCINATE
     Dosage: ONCE BEFORE INFUSION
     Route: 042
     Dates: start: 20201022, end: 20201022
  9. SOLU?MEDROL [Concomitant]
     Active Substance: METHYLPREDNISOLONE SODIUM SUCCINATE
     Dosage: ONCE BEFORE INFUSION
     Route: 042
     Dates: start: 20210507, end: 20210507
  10. OCRELIZUMAB. [Suspect]
     Active Substance: OCRELIZUMAB
     Dosage: 300 MG/250ML
     Route: 042
     Dates: start: 20201022, end: 20201022
  11. OCRELIZUMAB. [Suspect]
     Active Substance: OCRELIZUMAB
     Dosage: 600 MG/500 ML
     Route: 042
     Dates: start: 20210507, end: 20210507
  12. AMERTIL [Concomitant]
     Active Substance: CETIRIZINE HYDROCHLORIDE
     Dosage: ONCE BEFORE INFUSION
     Route: 048
     Dates: start: 20210507, end: 20210507
  13. OCRELIZUMAB. [Suspect]
     Active Substance: OCRELIZUMAB
     Indication: PRIMARY PROGRESSIVE MULTIPLE SCLEROSIS
     Dosage: 300 MG/250 ML
     Route: 042
     Dates: start: 20200928, end: 20200928
  14. PARACETAMOL [Concomitant]
     Active Substance: ACETAMINOPHEN
     Dosage: ONCE BEFORE INFUSION
     Route: 048
     Dates: start: 20210507, end: 20210507

REACTIONS (1)
  - COVID-19 [Recovered/Resolved]

NARRATIVE: CASE EVENT DATE: 20210325
